FAERS Safety Report 7595611-9 (Version None)
Quarter: 2011Q3

REPORT INFORMATION
  Report Type: 
  Country: None (occurrence: None)
  Receive Date: 20110707
  Receipt Date: 20110629
  Transmission Date: 20111222
  Serious: Yes (Other)
  Sender: FDA-Public Use
  Company Number: JP-GLAXOSMITHKLINE-B0727930A

PATIENT
  Age: 44 Year
  Sex: Female

DRUGS (1)
  1. SERETIDE (50MCG/250MCG) [Suspect]
     Indication: ASTHMA
     Dosage: 1000MCG PER DAY
     Route: 055
     Dates: start: 20090101

REACTIONS (1)
  - PAROSMIA [None]
